FAERS Safety Report 11896335 (Version 2)
Quarter: 2016Q1

REPORT INFORMATION
  Report Type: Report from Study
  Country: CA (occurrence: CA)
  Receive Date: 20160107
  Receipt Date: 20160112
  Transmission Date: 20160526
  Serious: Yes (Hospitalization)
  Sender: FDA-Public Use
  Company Number: CA-JNJFOC-20160103281

PATIENT
  Age: 50 Year
  Sex: Male

DRUGS (1)
  1. REMICADE [Suspect]
     Active Substance: INFLIXIMAB
     Indication: SARCOIDOSIS
     Route: 042
     Dates: start: 20150708

REACTIONS (4)
  - Central nervous system fungal infection [Unknown]
  - Product use issue [Unknown]
  - Craniotomy [Unknown]
  - Off label use [Unknown]

NARRATIVE: CASE EVENT DATE: 20150708
